FAERS Safety Report 21842037 (Version 8)
Quarter: 2023Q4

REPORT INFORMATION
  Report Type: Report from Study
  Country: US (occurrence: US)
  Receive Date: 20230110
  Receipt Date: 20231101
  Transmission Date: 20240109
  Serious: Yes (Other)
  Sender: FDA-Public Use
  Company Number: US-002147023-NVSC2023US004842

PATIENT
  Sex: Female

DRUGS (1)
  1. KESIMPTA [Suspect]
     Active Substance: OFATUMUMAB
     Indication: Product used for unknown indication
     Dosage: 20 MG
     Route: 065

REACTIONS (6)
  - Multiple sclerosis [Unknown]
  - Burns third degree [Unknown]
  - Visual impairment [Unknown]
  - Urinary tract infection [Unknown]
  - Skin lesion [Unknown]
  - Product dose omission issue [Unknown]
